FAERS Safety Report 4292390-8 (Version None)
Quarter: 2004Q1

REPORT INFORMATION
  Report Type: 
  Country: None (occurrence: None)
  Receive Date: 20040126
  Receipt Date: 20030827
  Transmission Date: 20041129
  Serious: No
  Sender: FDA-Public Use
  Company Number: USA030845585

PATIENT
  Age: 69 Year
  Sex: Female
  Weight: 68 kg

DRUGS (8)
  1. FORTEO [Suspect]
     Indication: OSTEOPOROSIS
     Dates: start: 20030824
  2. PROTONIX [Concomitant]
  3. DITROPAN [Concomitant]
  4. AVAPRO [Concomitant]
  5. AVANDIA [Concomitant]
     Indication: DIABETES MELLITUS
  6. ZETIA [Concomitant]
     Indication: BLOOD CHOLESTEROL
     Dosage: 10 MG
  7. ZYRTEC [Concomitant]
     Indication: HEADACHE
  8. REQUIP [Concomitant]
     Indication: MUSCLE CRAMP

REACTIONS (3)
  - INJECTION SITE ERYTHEMA [None]
  - INJECTION SITE HAEMORRHAGE [None]
  - INJECTION SITE MASS [None]
